FAERS Safety Report 6386669-3 (Version None)
Quarter: 2009Q4

REPORT INFORMATION
  Report Type: 
  Country: None (occurrence: None)
  Receive Date: 20091002
  Receipt Date: 20090923
  Transmission Date: 20100525
  Serious: Yes (Other)
  Sender: FDA-Public Use
  Company Number: US-JNJFOC-20090907370

PATIENT
  Age: 8 Year
  Sex: Male
  Weight: 43.09 kg

DRUGS (1)
  1. TYLENOL (CAPLET) [Suspect]
     Indication: COUGH
     Dosage: 30ML 2-3 TIMES PER DAY ^SINCE LAST WEEK^
     Route: 048

REACTIONS (6)
  - ACCIDENTAL OVERDOSE [None]
  - LACRIMATION INCREASED [None]
  - PAIN IN EXTREMITY [None]
  - PRODUCTIVE COUGH [None]
  - TRANSMISSION OF AN INFECTIOUS AGENT VIA A MEDICINAL PRODUCT [None]
  - WHEEZING [None]
